FAERS Safety Report 21505105 (Version 2)
Quarter: 2022Q4

REPORT INFORMATION
  Report Type: Report from Study
  Country: US (occurrence: US)
  Receive Date: 20221026
  Receipt Date: 20221029
  Transmission Date: 20230112
  Serious: Yes (Hospitalization, Other)
  Sender: FDA-Public Use
  Company Number: US-ABBVIE-22K-163-4469352-00

PATIENT
  Age: 57 Year
  Sex: Male
  Weight: 95 kg

DRUGS (13)
  1. HUMIRA [Suspect]
     Active Substance: ADALIMUMAB
     Indication: Crohn^s disease
     Dosage: CITRATE FREE?40 MG
     Route: 058
     Dates: start: 202203, end: 202205
  2. HUMIRA [Suspect]
     Active Substance: ADALIMUMAB
     Route: 058
     Dates: start: 202206
  3. CIPRO [Concomitant]
     Active Substance: CIPROFLOXACIN HYDROCHLORIDE
     Indication: Internal haemorrhage
  4. TESTOSTERONE [Concomitant]
     Active Substance: TESTOSTERONE
     Indication: Product used for unknown indication
     Dosage: 1/2 ML
  5. MODERNA COVID-19 VACCINE [Suspect]
     Active Substance: ELASOMERAN
     Indication: COVID-19 immunisation
     Dosage: TIME INTERVAL: 1 TOTAL: SECOND DOSE?ONE IN ONCE
     Route: 030
     Dates: start: 20210420, end: 20210420
  6. TORADOL [Concomitant]
     Active Substance: KETOROLAC TROMETHAMINE
     Indication: Pain
  7. PFIZER-BIONTECH COVID-19 VACCINE [Suspect]
     Active Substance: TOZINAMERAN
     Indication: COVID-19 immunisation
     Dosage: TIME INTERVAL: 1 TOTAL: ONE IN ONCE, BOOSTER DOSE
     Route: 030
  8. LOSARTAN [Concomitant]
     Active Substance: LOSARTAN
     Indication: Product used for unknown indication
     Dosage: 100 MG
  9. Covid-19 Vaccine [Concomitant]
     Indication: COVID-19 immunisation
     Dosage: TIME INTERVAL: TOTAL: FIRST DOSE?ONE IN ONCE
     Route: 030
  10. METRONIDAZOLE [Concomitant]
     Active Substance: METRONIDAZOLE
     Indication: Infection parasitic
  11. VITAMIN B12 [Concomitant]
     Active Substance: CYANOCOBALAMIN
     Indication: Product used for unknown indication
  12. HERBALS\TURMERIC [Concomitant]
     Active Substance: HERBALS\TURMERIC
     Indication: Product used for unknown indication
     Dosage: PILLS?1000 MG
     Route: 048
  13. FISH OIL [Concomitant]
     Active Substance: FISH OIL
     Indication: Product used for unknown indication
     Dosage: TWO PILLS
     Route: 048

REACTIONS (26)
  - Cholecystectomy [Recovered/Resolved]
  - Pyrexia [Recovering/Resolving]
  - Vaccination site reaction [Recovered/Resolved]
  - Cold sweat [Recovered/Resolved]
  - Vaccination site thrombosis [Recovered/Resolved]
  - Malaise [Recovered/Resolved]
  - Crohn^s disease [Recovered/Resolved]
  - Pyrexia [Recovered/Resolved]
  - Injection site swelling [Unknown]
  - Dyspepsia [Unknown]
  - Rectal haemorrhage [Recovered/Resolved]
  - Injection site reaction [Recovered/Resolved with Sequelae]
  - Gallbladder disorder [Unknown]
  - Injection site urticaria [Recovered/Resolved with Sequelae]
  - Internal haemorrhage [Recovering/Resolving]
  - Lymphadenopathy [Recovered/Resolved]
  - Amnesia [Recovering/Resolving]
  - Injection site urticaria [Unknown]
  - Transient global amnesia [Recovering/Resolving]
  - COVID-19 [Recovered/Resolved]
  - Injection site pain [Unknown]
  - Infection parasitic [Recovered/Resolved]
  - Pyrexia [Recovered/Resolved]
  - Injection site pruritus [Unknown]
  - Haemorrhoids [Recovering/Resolving]
  - Injection site urticaria [Recovering/Resolving]

NARRATIVE: CASE EVENT DATE: 20210422
